FAERS Safety Report 15542216 (Version 1)
Quarter: 2018Q4

REPORT INFORMATION
  Report Type: Report from Study
  Country: IT (occurrence: IT)
  Receive Date: 20181023
  Receipt Date: 20181023
  Transmission Date: 20190205
  Serious: Yes (Death, Life-Threatening, Other)
  Sender: FDA-Public Use
  Company Number: IT-JAZZ-2018-IT-015546

PATIENT
  Age: 7 Year
  Sex: Male
  Weight: 31 kg

DRUGS (8)
  1. CYCLOSPORINE. [Concomitant]
     Active Substance: CYCLOSPORINE
     Indication: PROPHYLAXIS AGAINST GRAFT VERSUS HOST DISEASE
     Dosage: 60
     Dates: start: 20170709, end: 20170714
  2. CARVEDILOL. [Concomitant]
     Active Substance: CARVEDILOL
     Indication: HYPERTENSION
     Dosage: 6.25 MG BID
     Route: 048
     Dates: start: 20170623, end: 20170714
  3. MORPHINE [Concomitant]
     Active Substance: MORPHINE
     Indication: STOMATITIS
  4. AMLODIPINE [Concomitant]
     Active Substance: AMLODIPINE BESYLATE
     Indication: HYPERTENSION
     Dosage: 5 MG BID
     Route: 048
     Dates: start: 20170706, end: 20170714
  5. MEROPENEM. [Concomitant]
     Active Substance: MEROPENEM
     Indication: ANTIBIOTIC PROPHYLAXIS
     Dosage: 750 MG TID
     Route: 042
     Dates: start: 20170708, end: 20170714
  6. FLUCONAZOLE. [Concomitant]
     Active Substance: FLUCONAZOLE
     Indication: ANTIFUNGAL PROPHYLAXIS
     Dosage: 200 MG
     Route: 042
     Dates: start: 20170623, end: 20170714
  7. DEFITELIO [Suspect]
     Active Substance: DEFIBROTIDE SODIUM
     Indication: PROPHYLAXIS
     Dosage: 25 MG/KG, QD
     Dates: start: 20170710, end: 20170714
  8. ACICLOVIR [Concomitant]
     Active Substance: ACYCLOVIR
     Indication: ANTIVIRAL PROPHYLAXIS
     Dosage: 300 MG TID
     Route: 042
     Dates: start: 20170623, end: 20170714

REACTIONS (2)
  - Cardiac arrest [Fatal]
  - Gastrointestinal haemorrhage [Fatal]

NARRATIVE: CASE EVENT DATE: 20170714
